FAERS Safety Report 24928393 (Version 3)
Quarter: 2025Q1

REPORT INFORMATION
  Report Type: Spontaneous
  Country: KR (occurrence: KR)
  Receive Date: 20250205
  Receipt Date: 20250324
  Transmission Date: 20250408
  Serious: Yes (Hospitalization)
  Sender: SAMSUNG BIOEPIS
  Company Number: KR-SAMSUNG BIOEPIS-SB-2025-04461

PATIENT
  Age: 71 Year
  Sex: Male
  Weight: 53 kg

DRUGS (42)
  1. TRASTUZUMAB [Suspect]
     Active Substance: TRASTUZUMAB
     Indication: Gallbladder cancer
     Route: 042
     Dates: start: 20241203
  2. GEMCITABINE [Suspect]
     Active Substance: GEMCITABINE
     Indication: Gallbladder cancer
     Route: 042
     Dates: start: 20241203, end: 20250127
  3. GEMCITABINE [Suspect]
     Active Substance: GEMCITABINE
     Route: 042
     Dates: end: 20250225
  4. GEMCITABINE [Suspect]
     Active Substance: GEMCITABINE
     Dates: start: 20250303
  5. CISPLATIN [Suspect]
     Active Substance: CISPLATIN
     Indication: Gallbladder cancer
     Route: 042
     Dates: start: 20241203, end: 20250127
  6. CISPLATIN [Suspect]
     Active Substance: CISPLATIN
     Route: 042
     Dates: end: 20250225
  7. CISPLATIN [Suspect]
     Active Substance: CISPLATIN
     Dates: start: 20250303
  8. NIVOLUMAB [Suspect]
     Active Substance: NIVOLUMAB
     Indication: Gallbladder cancer
     Route: 042
     Dates: start: 20241203
  9. EZETIMIBE\ROSUVASTATIN [Concomitant]
     Active Substance: EZETIMIBE\ROSUVASTATIN
     Indication: Product used for unknown indication
     Dosage: 10/10 MG;
     Dates: start: 20241203
  10. TRIMETAZIDINE DIHYDROCHLORIDE [Concomitant]
     Active Substance: TRIMETAZIDINE DIHYDROCHLORIDE
     Indication: Product used for unknown indication
     Dates: start: 20241203
  11. SUPRAX [Concomitant]
     Active Substance: CEFIXIME
     Indication: Product used for unknown indication
     Dates: start: 20241203
  12. SUPRAX [Concomitant]
     Active Substance: CEFIXIME
     Dates: start: 20241223
  13. SUPRAX [Concomitant]
     Active Substance: CEFIXIME
     Dosage: POWDER;
     Dates: start: 20250114
  14. OXYCODONE HYDROCHLORIDE [Concomitant]
     Active Substance: OXYCODONE HYDROCHLORIDE
     Indication: Product used for unknown indication
     Dates: start: 20241203
  15. Dulackhan [Concomitant]
     Indication: Product used for unknown indication
     Dates: start: 20241112
  16. Dulackhan [Concomitant]
     Dates: start: 20241220
  17. XARELTO [Concomitant]
     Active Substance: RIVAROXABAN
     Indication: Product used for unknown indication
     Dates: start: 20241127
  18. GLICLAZIDE [Concomitant]
     Active Substance: GLICLAZIDE
     Indication: Product used for unknown indication
     Dates: start: 20241127
  19. JANUVIA [Concomitant]
     Active Substance: SITAGLIPTIN PHOSPHATE
     Indication: Product used for unknown indication
     Dates: start: 20241113
  20. Movizolo [Concomitant]
     Indication: Product used for unknown indication
     Dates: start: 20241113
  21. Fexuclue [Concomitant]
     Indication: Product used for unknown indication
     Dates: start: 20241113
  22. URSODIOL [Concomitant]
     Active Substance: URSODIOL
     Indication: Product used for unknown indication
     Dates: start: 20241113
  23. Megace F [Concomitant]
     Indication: Product used for unknown indication
     Dosage: SUSPENSION;
     Dates: start: 20241113
  24. Zemimet SR [Concomitant]
     Indication: Product used for unknown indication
     Dosage: 50/500 MG;
     Dates: start: 20241211
  25. RYZODEG 70/30 [Concomitant]
     Active Substance: INSULIN ASPART\INSULIN DEGLUDEC
     Indication: Product used for unknown indication
     Dosage: 100 I.U/ML;
     Dates: start: 20241211
  26. NEXIUM I.V. [Concomitant]
     Active Substance: ESOMEPRAZOLE SODIUM
     Indication: Product used for unknown indication
     Dates: start: 20241217
  27. NEXIUM I.V. [Concomitant]
     Active Substance: ESOMEPRAZOLE SODIUM
     Dates: start: 20241221
  28. METOCLOPRAMIDE HYDROCHLORIDE [Concomitant]
     Active Substance: METOCLOPRAMIDE HYDROCHLORIDE
     Indication: Product used for unknown indication
     Dates: start: 20241222
  29. MOSAPRIDE CITRATE [Concomitant]
     Active Substance: MOSAPRIDE CITRATE
     Indication: Product used for unknown indication
     Dates: start: 20241217
  30. Dongkwang Meropenem [Concomitant]
     Indication: Product used for unknown indication
     Dates: start: 20241218
  31. Magmil S [Concomitant]
     Indication: Product used for unknown indication
     Dates: start: 20241223
  32. PROPACETAMOL HYDROCHLORIDE [Concomitant]
     Active Substance: PROPACETAMOL HYDROCHLORIDE
     Indication: Product used for unknown indication
     Dates: start: 20241218
  33. Uniperatam [Concomitant]
     Indication: Product used for unknown indication
     Dates: start: 20241214
  34. Uniperatam [Concomitant]
     Dates: start: 20250127
  35. AMINO ACIDS\DEXTROSE\ELECTROLYTES NOS\SOYBEAN OIL\VITAMINS [Concomitant]
     Active Substance: AMINO ACIDS\DEXTROSE\ELECTROLYTES NOS\SOYBEAN OIL\VITAMINS
     Indication: Product used for unknown indication
     Dates: start: 20241214
  36. AMINO ACIDS\DEXTROSE\ELECTROLYTES NOS\SOYBEAN OIL\VITAMINS [Concomitant]
     Active Substance: AMINO ACIDS\DEXTROSE\ELECTROLYTES NOS\SOYBEAN OIL\VITAMINS
     Dates: start: 20250226
  37. Stavic [Concomitant]
     Indication: Product used for unknown indication
     Dosage: SUSPENSION;
     Dates: start: 20241214
  38. Teicocin [Concomitant]
     Indication: Product used for unknown indication
     Dates: start: 20241218
  39. DIMETHICONE\PANCRELIPASE\URSODIOL [Concomitant]
     Active Substance: DIMETHICONE\PANCRELIPASE\URSODIOL
     Indication: Product used for unknown indication
     Dates: start: 20241216
  40. Sama Tantum [Concomitant]
     Indication: Product used for unknown indication
     Dosage: SOLUTION;
     Dates: start: 20241217
  41. POTASSIUM CHLORIDE [Concomitant]
     Active Substance: POTASSIUM CHLORIDE
     Indication: Product used for unknown indication
     Dates: start: 20250114
  42. Acetphen premix [Concomitant]
     Indication: Product used for unknown indication
     Dates: start: 20250114

REACTIONS (3)
  - C-reactive protein increased [Recovered/Resolved]
  - Cholangitis [Recovered/Resolved]
  - Off label use [Unknown]

NARRATIVE: CASE EVENT DATE: 20250127
